FAERS Safety Report 5060476-6 (Version None)
Quarter: 2006Q2

REPORT INFORMATION
  Report Type: 
  Country: None (occurrence: None)
  Receive Date: 20060630
  Receipt Date: 20050613
  Transmission Date: 20061013
  Serious: Yes (Life-Threatening, Hospitalization)
  Sender: FDA-Public Use
  Company Number: VISP-PR-0505S-0285

PATIENT
  Age: 70 Year
  Sex: Male

DRUGS (1)
  1. VISIPAQUE [Suspect]
     Indication: HEART TRANSPLANT
     Dosage: 60 ML, SINGLE DOSE, I.A.
     Dates: start: 20050519, end: 20050519

REACTIONS (1)
  - MYOCARDIAL INFARCTION [None]
